FAERS Safety Report 8389789-7 (Version None)
Quarter: 2012Q2

REPORT INFORMATION
  Report Type: 
  Country: None (occurrence: None)
  Receive Date: 20120529
  Receipt Date: 20120523
  Transmission Date: 20120825
  Serious: Yes (Other)
  Sender: FDA-Public Use
  Company Number: PHEH2012US001382

PATIENT
  Sex: Male

DRUGS (5)
  1. METHYLPHENIDATE [Suspect]
  2. METHADONE HCL [Concomitant]
     Dosage: 10 MG, QID
  3. RITALIN LA [Suspect]
     Indication: ATTENTION DEFICIT/HYPERACTIVITY DISORDER
     Dosage: 40 MG, UNK
  4. KLONOPIN [Concomitant]
     Indication: TREMOR
     Dosage: 2 MG, TID
  5. KLONOPIN [Concomitant]
     Dosage: 2 MG, QID

REACTIONS (16)
  - LUMBAR SPINAL STENOSIS [None]
  - OBSESSIVE-COMPULSIVE DISORDER [None]
  - FRACTURED COCCYX [None]
  - ABNORMAL BEHAVIOUR [None]
  - AGGRESSION [None]
  - BACK PAIN [None]
  - DIZZINESS [None]
  - MEMORY IMPAIRMENT [None]
  - ACCIDENT [None]
  - LOSS OF CONSCIOUSNESS [None]
  - STAPHYLOCOCCAL INFECTION [None]
  - ANXIETY [None]
  - FALL [None]
  - WITHDRAWAL SYNDROME [None]
  - INSOMNIA [None]
  - STRESS [None]
